FAERS Safety Report 11993172 (Version 1)
Quarter: 2016Q1

REPORT INFORMATION
  Report Type: Spontaneous
  Country: US (occurrence: None)
  Receive Date: 20160202
  Receipt Date: 20160202
  Transmission Date: 20160526
  Serious: Yes (Other)
  Sender: FDA-Public Use
  Company Number: None

PATIENT
  Age: 29 Year
  Sex: Female
  Weight: 103.42 kg

DRUGS (6)
  1. ALLEGRA [Concomitant]
     Active Substance: FEXOFENADINE HYDROCHLORIDE
  2. LUPRON [Suspect]
     Active Substance: LEUPROLIDE ACETATE
     Indication: ENDOMETRIOSIS
     Dosage: 1 SHOT  ONE TIME PER MONTH INTO THE MUSCLE
     Route: 030
  3. LUPRON [Suspect]
     Active Substance: LEUPROLIDE ACETATE
     Indication: INFERTILITY
     Dosage: 1 SHOT  ONE TIME PER MONTH INTO THE MUSCLE
     Route: 030
  4. TRAMADOL. [Concomitant]
     Active Substance: TRAMADOL
  5. ASTHMA INHALER [Concomitant]
     Active Substance: UNSPECIFIED INGREDIENT
  6. IBUPROFEN. [Concomitant]
     Active Substance: IBUPROFEN

REACTIONS (4)
  - Depression [None]
  - Fatigue [None]
  - Feeling abnormal [None]
  - Vitamin D decreased [None]

NARRATIVE: CASE EVENT DATE: 20060101
